APPROVED DRUG PRODUCT: READYPREP CHG
Active Ingredient: CHLORHEXIDINE GLUCONATE
Strength: 2%
Dosage Form/Route: CLOTH;TOPICAL
Application: N207964 | Product #001
Applicant: MEDLINE INDUSTRIES INC
Approved: Nov 20, 2018 | RLD: Yes | RS: Yes | Type: OTC